FAERS Safety Report 19458120 (Version 2)
Quarter: 2021Q3

REPORT INFORMATION
  Report Type: Spontaneous
  Country: US (occurrence: US)
  Receive Date: 20210624
  Receipt Date: 20210706
  Transmission Date: 20211014
  Serious: Yes (Hospitalization, Other)
  Sender: FDA-Public Use
  Company Number: US-ASTRAZENECA-2021A541413

PATIENT

DRUGS (4)
  1. IBRANCE [Suspect]
     Active Substance: PALBOCICLIB
     Indication: BREAST CANCER
     Dosage: FOR 21 DAYS ON THE 7 DAY OFF IN CONJUNCTION WITH FASLODEX INTRAMUSCULAR
     Route: 048
     Dates: start: 20210514, end: 20210530
  2. FASLODEX [Suspect]
     Active Substance: FULVESTRANT
     Route: 030
     Dates: end: 20210530
  3. ZOSYN [Concomitant]
     Active Substance: PIPERACILLIN SODIUM\TAZOBACTAM SODIUM
  4. VANCOMYCIN [Concomitant]
     Active Substance: VANCOMYCIN

REACTIONS (6)
  - Incision site discharge [Unknown]
  - White blood cell count decreased [Unknown]
  - Post procedural infection [Recovered/Resolved]
  - Impaired healing [Unknown]
  - Incision site swelling [Unknown]
  - Incision site pain [Unknown]

NARRATIVE: CASE EVENT DATE: 20210505
